FAERS Safety Report 9292117 (Version 2)
Quarter: 2013Q2

REPORT INFORMATION
  Report Type: Spontaneous
  Country: IL (occurrence: IL)
  Receive Date: 20130516
  Receipt Date: 20130531
  Transmission Date: 20140414
  Serious: Yes (Other)
  Sender: FDA-Public Use
  Company Number: IL-ROCHE-1223692

PATIENT
  Sex: Female

DRUGS (1)
  1. MABTHERA [Suspect]
     Indication: LYMPHOMA
     Route: 042

REACTIONS (4)
  - Platelet count decreased [Recovered/Resolved]
  - Haematemesis [Unknown]
  - Peptic ulcer [Unknown]
  - Ecchymosis [Unknown]
